FAERS Safety Report 23294326 (Version 1)
Quarter: 2023Q4

REPORT INFORMATION
  Report Type: Other
  Country: None (occurrence: GR)
  Receive Date: 20231213
  Receipt Date: 20231213
  Transmission Date: 20240110
  Serious: Yes (Hospitalization)
  Sender: FDA-Public Use
  Company Number: GR-B.Braun Medical Inc.-2149259

PATIENT
  Age: 34 Year
  Sex: Female

DRUGS (6)
  1. CEFUROXIME SODIUM [Suspect]
     Active Substance: CEFUROXIME SODIUM
     Indication: Enterobacter infection
  2. CEFUROXIME [Suspect]
     Active Substance: CEFUROXIME
  3. AMOXICILLIN [Suspect]
     Active Substance: AMOXICILLIN
  4. BETADINE [Suspect]
     Active Substance: POVIDONE-IODINE
  5. BETAMETHASONE [Suspect]
     Active Substance: BETAMETHASONE\BETAMETHASONE DIPROPIONATE
  6. THYROXINE [Suspect]
     Active Substance: LEVOTHYROXINE

REACTIONS (5)
  - Premature rupture of membranes [None]
  - Exposure during pregnancy [None]
  - Delayed delivery [None]
  - Live birth [None]
  - Twin pregnancy [None]
